FAERS Safety Report 6742124-X (Version None)
Quarter: 2010Q2

REPORT INFORMATION
  Report Type: 
  Country: None (occurrence: None)
  Receive Date: 20100524
  Receipt Date: 20100514
  Transmission Date: 20101027
  Serious: Yes (Other)
  Sender: FDA-Public Use
  Company Number: 8053532

PATIENT
  Sex: Male

DRUGS (8)
  1. KEPPRA [Suspect]
     Indication: CONVULSION
     Dosage: 500 MG QD ORAL
     Route: 048
  2. OMEPRAZOLE [Concomitant]
  3. VITAMIN TAB [Concomitant]
  4. BURPRENORPHINE [Concomitant]
  5. VITAMIN B COMPLEX CAP [Concomitant]
  6. CO-AMILOFRUSE [Concomitant]
  7. THIAMINE [Concomitant]
  8. LACTULOSE [Concomitant]

REACTIONS (6)
  - BLOOD ALBUMIN DECREASED [None]
  - CONVULSION [None]
  - HEPATIC ENCEPHALOPATHY [None]
  - PLATELET COUNT DECREASED [None]
  - SEPSIS [None]
  - WHITE BLOOD CELL COUNT DECREASED [None]
